FAERS Safety Report 5382501-5 (Version None)
Quarter: 2007Q2

REPORT INFORMATION
  Report Type: 
  Country: None (occurrence: None)
  Receive Date: 20070629
  Receipt Date: 20070201
  Transmission Date: 20071010
  Serious: Yes (Hospitalization)
  Sender: FDA-Public Use
  Company Number: US200702000675

PATIENT
  Age: 63 Year
  Sex: Female

DRUGS (3)
  1. HUMALOG [Suspect]
     Indication: DIABETES MELLITUS
     Dosage: AS NEEDED
  2. HUMALOG PEN (HUMALOG PEN) [Concomitant]
  3. ANTIDEPRESSANTS [Concomitant]

REACTIONS (7)
  - BLOOD CREATINE [None]
  - DYSURIA [None]
  - NEPHROLITHIASIS [None]
  - PRURITUS GENERALISED [None]
  - RASH GENERALISED [None]
  - SKIN LESION [None]
  - SLEEP DISORDER [None]
